FAERS Safety Report 9086683 (Version 1)
Quarter: 2013Q1

REPORT INFORMATION
  Report Type: Spontaneous
  Country: US (occurrence: US)
  Receive Date: 20130131
  Receipt Date: 20130131
  Transmission Date: 20140127
  Serious: No
  Sender: FDA-Public Use
  Company Number: US-ABBOTT-12P-163-0975532-00

PATIENT
  Age: 65 None
  Sex: Female
  Weight: 58.11 kg

DRUGS (3)
  1. HUMIRA [Suspect]
     Indication: RHEUMATOID ARTHRITIS
     Route: 058
  2. LITHIUM [Concomitant]
     Indication: PRODUCT USED FOR UNKNOWN INDICATION
     Dosage: 1/2 TAB IN AM AND FULL TAB AT NIGHT, TAPERED
     Dates: start: 20120830
  3. LITHIUM [Concomitant]
     Dates: end: 20120829

REACTIONS (2)
  - Tremor [Not Recovered/Not Resolved]
  - Device malfunction [Not Recovered/Not Resolved]
